FAERS Safety Report 8302156-7 (Version None)
Quarter: 2012Q1

REPORT INFORMATION
  Report Type: 
  Country: None (occurrence: None)
  Receive Date: 20120326
  Receipt Date: 20110316
  Transmission Date: 20120608
  Serious: Yes (Other)
  Sender: FDA-Public Use
  Company Number: PHHY2011US04386

PATIENT
  Age: 82 Year
  Sex: Male

DRUGS (1)
  1. TASIGNA [Suspect]
     Indication: CHRONIC MYELOID LEUKAEMIA
     Dosage: 400 MG, BID, ORAL
     Route: 048
     Dates: start: 20100717

REACTIONS (6)
  - DEPRESSION [None]
  - SOMNOLENCE [None]
  - CHILLS [None]
  - FATIGUE [None]
  - LIBIDO DECREASED [None]
  - ASTHENIA [None]
